FAERS Safety Report 9598949 (Version 1)
Quarter: 2013Q4

REPORT INFORMATION
  Report Type: Spontaneous
  Country: US (occurrence: US)
  Receive Date: 20131004
  Receipt Date: 20131004
  Transmission Date: 20140711
  Serious: No
  Sender: FDA-Public Use
  Company Number: US-AMGEN-USASP2013026405

PATIENT
  Age: 83 Year
  Sex: Male

DRUGS (7)
  1. ENBREL [Suspect]
     Indication: PRODUCT USED FOR UNKNOWN INDICATION
     Dosage: 50 MG, QWK
     Route: 058
  2. METHOTREXATE [Concomitant]
     Dosage: 2.5 MG, UNK
  3. DILANTIN                           /00017401/ [Concomitant]
     Dosage: 30 MG, UNK
  4. TERAZOSIN [Concomitant]
     Dosage: 1 MG, UNK
  5. PRAVASTATIN [Concomitant]
     Dosage: 10 MG, UNK
  6. FINASTERIDE [Concomitant]
     Dosage: 5 MG, UNK
  7. WARFARIN [Concomitant]
     Dosage: 1 MG, UNK

REACTIONS (1)
  - Nasopharyngitis [Unknown]
